FAERS Safety Report 9026975 (Version 1)
Quarter: 2013Q1

REPORT INFORMATION
  Report Type: Spontaneous
  Country: US (occurrence: US)
  Receive Date: 20130123
  Receipt Date: 20130123
  Transmission Date: 20140127
  Serious: Yes (Other)
  Sender: FDA-Public Use
  Company Number: US-SANOFI-AVENTIS-2013SA002313

PATIENT
  Age: 71 Year
  Sex: Female

DRUGS (4)
  1. ALLEGRA [Suspect]
     Indication: MULTIPLE ALLERGIES
     Route: 048
  2. DIPHENHYDRAMINE HYDROCHLORIDE [Concomitant]
  3. ZYRTEC [Concomitant]
  4. CHLORTRIMETON [Concomitant]

REACTIONS (2)
  - Cataract [Not Recovered/Not Resolved]
  - Sleep disorder [Not Recovered/Not Resolved]
